FAERS Safety Report 25007623 (Version 2)
Quarter: 2025Q2

REPORT INFORMATION
  Report Type: Report from Study
  Country: CA (occurrence: CA)
  Receive Date: 20250225
  Receipt Date: 20250411
  Transmission Date: 20250717
  Serious: Yes (Death)
  Sender: ROCHE
  Company Number: CA-ROCHE-10000215548

PATIENT
  Age: 64 Year
  Sex: Female

DRUGS (2)
  1. VABYSMO [Suspect]
     Active Substance: FARICIMAB-SVOA
     Indication: Macular oedema
     Route: 065
     Dates: start: 20230424
  2. VABYSMO [Suspect]
     Active Substance: FARICIMAB-SVOA
     Indication: Diabetes mellitus

REACTIONS (1)
  - Death [Fatal]

NARRATIVE: CASE EVENT DATE: 20250214
